FAERS Safety Report 15961841 (Version 1)
Quarter: 2019Q1

REPORT INFORMATION
  Report Type: Spontaneous
  Country: US (occurrence: US)
  Receive Date: 20190123
  Receipt Date: 20190123
  Transmission Date: 20190417
  Serious: No
  Sender: FDA-Public Use
  Company Number: None

PATIENT
  Age: 86 Year
  Sex: Male

DRUGS (2)
  1. ESBRIET [Suspect]
     Active Substance: PIRFENIDONE
     Indication: PULMONARY FIBROSIS
     Dates: start: 201810, end: 201812
  2. MEXILLETINE [Concomitant]

REACTIONS (2)
  - Dizziness [None]
  - Somnolence [None]

NARRATIVE: CASE EVENT DATE: 20181215
